FAERS Safety Report 5805365-1 (Version None)
Quarter: 2008Q3

REPORT INFORMATION
  Report Type: 
  Country: None (occurrence: None)
  Receive Date: 20080702
  Receipt Date: 20070802
  Transmission Date: 20090109
  Serious: Yes (Other)
  Sender: FDA-Public Use
  Company Number: HQWYE389306AUG07

PATIENT
  Age: 78 Year
  Sex: Female

DRUGS (2)
  1. ADVIL [Suspect]
     Indication: ANALGESIA
     Dosage: 1 TABLET THREE TIMES A DAY (DOCTOR PRESCRIBED DAILY USE OF PRODUCT), ORAL
     Route: 048
     Dates: start: 20050101, end: 20050101
  2. LOPRESSOR [Concomitant]

REACTIONS (2)
  - GASTRIC DISORDER [None]
  - GASTRIC ULCER [None]
